FAERS Safety Report 20145698 (Version 1)
Quarter: 2021Q4

REPORT INFORMATION
  Report Type: Spontaneous
  Country: DE (occurrence: DE)
  Receive Date: 20211203
  Receipt Date: 20211203
  Transmission Date: 20220304
  Serious: Yes (Life-Threatening, Hospitalization, Other)
  Sender: FDA-Public Use
  Company Number: DE-ROCHE-2951819

PATIENT
  Sex: Male

DRUGS (4)
  1. BENDAMUSTINE HYDROCHLORIDE [Suspect]
     Active Substance: BENDAMUSTINE HYDROCHLORIDE
     Indication: Follicular lymphoma
     Dosage: (INDUCTION THERAPY IN RECURRENCE)
     Route: 042
  2. MABTHERA [Suspect]
     Active Substance: RITUXIMAB
     Indication: Follicular lymphoma
     Dosage: (INDUCTION THERAPY IN RECURRENCE)
     Route: 065
  3. MABTHERA [Suspect]
     Active Substance: RITUXIMAB
     Dosage: (MAINTENANCE THERAPY)
     Route: 065
     Dates: start: 202106
  4. MABTHERA [Suspect]
     Active Substance: RITUXIMAB
     Dosage: (MAINTENANCE THERAPY)
     Route: 065
     Dates: start: 202109

REACTIONS (2)
  - Coronary artery disease [Unknown]
  - Acute myocardial infarction [Recovering/Resolving]

NARRATIVE: CASE EVENT DATE: 20210911
